FAERS Safety Report 5866233-2 (Version None)
Quarter: 2008Q3

REPORT INFORMATION
  Report Type: 
  Country: None (occurrence: None)
  Receive Date: 20080829
  Receipt Date: 20080820
  Transmission Date: 20090109
  Serious: Yes (Death)
  Sender: FDA-Public Use
  Company Number: JP-PFIZER INC-2008070206

PATIENT
  Age: 46 Year
  Sex: Male
  Weight: 51 kg

DRUGS (8)
  1. SOLU-MEDROL [Suspect]
     Indication: TRANSPLANT REJECTION
     Dosage: DAILY DOSE:50MG
     Route: 042
     Dates: start: 20060701, end: 20060901
  2. CYCLOSPORINE [Suspect]
  3. ALL OTHER THERAPEUTIC PRODUCTS [Suspect]
  4. MIZORIBINE [Suspect]
  5. BASILIXIMAB [Concomitant]
  6. TACROLIMUS [Concomitant]
  7. MYCOPHENOLATE MOFETIL [Concomitant]
  8. PREDNISOLONE [Concomitant]

REACTIONS (1)
  - COLON CANCER METASTATIC [None]
